FAERS Safety Report 18991892 (Version 1)
Quarter: 2021Q1

REPORT INFORMATION
  Report Type: Spontaneous
  Country: CN (occurrence: CN)
  Receive Date: 20210310
  Receipt Date: 20210310
  Transmission Date: 20210420
  Serious: Yes (Disabling)
  Sender: FDA-Public Use
  Company Number: CN-PFIZER INC-2021218474

PATIENT
  Age: 79 Year
  Sex: Female
  Weight: 47.5 kg

DRUGS (2)
  1. SULBACTAM SODIUM [Concomitant]
     Active Substance: SULBACTAM SODIUM
     Indication: ACINETOBACTER INFECTION
     Dosage: 2 G, 3X/DAY
     Route: 041
     Dates: start: 20210212, end: 20210215
  2. TYGACIL [Suspect]
     Active Substance: TIGECYCLINE
     Indication: ACINETOBACTER INFECTION
     Dosage: 100 MG, 2X/DAY
     Route: 041
     Dates: start: 20210212, end: 20210217

REACTIONS (8)
  - Hepatic function abnormal [Recovering/Resolving]
  - Bilirubin conjugated increased [Recovering/Resolving]
  - Off label use [Unknown]
  - Pancreatic injury [Recovering/Resolving]
  - Blood bilirubin increased [Recovering/Resolving]
  - Aspartate aminotransferase increased [Recovering/Resolving]
  - Blood alkaline phosphatase increased [Recovering/Resolving]
  - Serum amyloid A protein increased [Recovering/Resolving]

NARRATIVE: CASE EVENT DATE: 20210212
